FAERS Safety Report 4692441-2 (Version None)
Quarter: 2005Q3

REPORT INFORMATION
  Report Type: 
  Country: None (occurrence: None)
  Receive Date: 20050613
  Receipt Date: 20050330
  Transmission Date: 20060218
  Serious: Yes (Hospitalization)
  Sender: FDA-Public Use
  Company Number: 2004-00546

PATIENT
  Age: 77 Year
  Sex: Female
  Weight: 121 kg

DRUGS (2)
  1. VELCADE [Suspect]
     Indication: MULTIPLE MYELOMA
     Dosage: 2.00 MG, IV BOLUS
     Route: 040
     Dates: start: 20040816, end: 20040908
  2. ARANESP [Concomitant]

REACTIONS (7)
  - ASTHENIA [None]
  - DEEP VEIN THROMBOSIS [None]
  - FATIGUE [None]
  - HYPERTENSION [None]
  - NEUROPATHY PERIPHERAL [None]
  - ORTHOSTATIC HYPOTENSION [None]
  - SYNCOPE [None]
